FAERS Safety Report 20130036 (Version 1)
Quarter: 2021Q4

REPORT INFORMATION
  Report Type: Spontaneous
  Country: US (occurrence: US)
  Receive Date: 20211130
  Receipt Date: 20211130
  Transmission Date: 20220303
  Serious: No
  Sender: FDA-Public Use
  Company Number: US-MICRO LABS LIMITED-ML2021-02385

PATIENT
  Sex: Female

DRUGS (2)
  1. DORZOLAMIDE\TIMOLOL [Suspect]
     Active Substance: DORZOLAMIDE\TIMOLOL
     Indication: Intraocular pressure test
     Dosage: SHE MENTIONED THAT THE PATIENT USED THE PRODUCT FOR A COUPLE OF DAYS, PROBABLY A WEEK.
  2. LUMIGAN [Concomitant]
     Active Substance: BIMATOPROST

REACTIONS (2)
  - Eye irritation [Unknown]
  - Eye pain [Unknown]
